FAERS Safety Report 7893536-2 (Version None)
Quarter: 2011Q4

REPORT INFORMATION
  Report Type: 
  Country: None (occurrence: None)
  Receive Date: 20111104
  Receipt Date: 20111102
  Transmission Date: 20120403
  Serious: Yes (Hospitalization, Other)
  Sender: FDA-Public Use
  Company Number: US-MERCK-1012USA02780

PATIENT
  Age: 74 Year
  Sex: Female
  Weight: 59 kg

DRUGS (5)
  1. PREDNISONE [Concomitant]
     Indication: RHEUMATOID ARTHRITIS
     Route: 065
     Dates: start: 19750101, end: 20030101
  2. CENTRUM SILVER [Concomitant]
     Route: 065
  3. VITAMINS (UNSPECIFIED) [Concomitant]
     Route: 065
  4. OMEGA-3 MARINE TRIGLYCERIDES [Concomitant]
     Route: 065
  5. FOSAMAX [Suspect]
     Indication: OSTEOPOROSIS
     Route: 048
     Dates: start: 19980101, end: 20091101

REACTIONS (19)
  - DEEP VEIN THROMBOSIS [None]
  - ARTHRALGIA [None]
  - RHINITIS ALLERGIC [None]
  - ANGIOPATHY [None]
  - PATELLOFEMORAL PAIN SYNDROME [None]
  - HYPERKALAEMIA [None]
  - SKIN LESION [None]
  - FALL [None]
  - ARTHROPATHY [None]
  - VITAMIN D DEFICIENCY [None]
  - JOINT EFFUSION [None]
  - LIGAMENT SPRAIN [None]
  - DENTAL CARIES [None]
  - OSTEOARTHRITIS [None]
  - TRANSIENT ISCHAEMIC ATTACK [None]
  - BONE DISORDER [None]
  - HYPOKALAEMIA [None]
  - TEMPORAL ARTERITIS [None]
  - FEMUR FRACTURE [None]
